FAERS Safety Report 6330722-7 (Version None)
Quarter: 2009Q3

REPORT INFORMATION
  Report Type: 
  Country: None (occurrence: None)
  Receive Date: 20090827
  Receipt Date: 20090819
  Transmission Date: 20100115
  Serious: Yes (Hospitalization)
  Sender: FDA-Public Use
  Company Number: US-BAXTER-2009BH012972

PATIENT
  Sex: Male

DRUGS (1)
  1. AMINO ACIDS NOS [Suspect]
     Indication: DRUG USE FOR UNKNOWN INDICATION
     Route: 065

REACTIONS (1)
  - HEPATIC ENZYME INCREASED [None]
